FAERS Safety Report 22038431 (Version 1)
Quarter: 2023Q1

REPORT INFORMATION
  Report Type: Spontaneous
  Country: US (occurrence: US)
  Receive Date: 20230227
  Receipt Date: 20230227
  Transmission Date: 20230418
  Serious: No
  Sender: FDA-Public Use
  Company Number: US-BRISTOL-MYERS SQUIBB COMPANY-2023-024903

PATIENT
  Age: 77 Year
  Sex: Male
  Weight: 74.84 kg

DRUGS (8)
  1. REBLOZYL [Suspect]
     Active Substance: LUSPATERCEPT-AAMT
     Indication: Myelodysplastic syndrome
     Route: 058
     Dates: start: 20230117
  2. REBLOZYL [Suspect]
     Active Substance: LUSPATERCEPT-AAMT
     Dates: start: 20230207
  3. APIXABAN [Concomitant]
     Active Substance: APIXABAN
     Indication: Product used for unknown indication
  4. MINERALS [Concomitant]
     Active Substance: MINERALS
     Indication: Product used for unknown indication
  5. BIFIDOBACTERIUM ANIMALIS LACTIS [Concomitant]
     Active Substance: BIFIDOBACTERIUM ANIMALIS LACTIS
     Indication: Product used for unknown indication
  6. METOPROLOL SUCCINATE [Concomitant]
     Active Substance: METOPROLOL SUCCINATE
     Indication: Product used for unknown indication
  7. METFORMIN [Concomitant]
     Active Substance: METFORMIN HYDROCHLORIDE
     Indication: Product used for unknown indication
  8. JADENU [Concomitant]
     Active Substance: DEFERASIROX
     Indication: Product used for unknown indication

REACTIONS (11)
  - Fatigue [Unknown]
  - Somnolence [Unknown]
  - Muscle fatigue [Unknown]
  - Gait disturbance [Unknown]
  - Arthralgia [Unknown]
  - Myalgia [Unknown]
  - Bone pain [Unknown]
  - Dizziness [Unknown]
  - Headache [Unknown]
  - Dyspnoea [Unknown]
  - Chest discomfort [Unknown]
